FAERS Safety Report 9365184 (Version 1)
Quarter: 2013Q2

REPORT INFORMATION
  Report Type: Spontaneous
  Country: US (occurrence: US)
  Receive Date: 20130624
  Receipt Date: 20130624
  Transmission Date: 20140414
  Serious: Yes (Hospitalization)
  Sender: FDA-Public Use
  Company Number: US-BAXTER-2013BAX022807

PATIENT
  Age: 66 Year
  Sex: Female

DRUGS (1)
  1. DIANEAL PD2 [Suspect]
     Indication: PERITONEAL DIALYSIS
     Route: 033

REACTIONS (4)
  - Fall [Recovered/Resolved]
  - Confusional state [Recovered/Resolved]
  - Hypophagia [Recovered/Resolved]
  - Mental status changes [Recovered/Resolved]
